FAERS Safety Report 9251183 (Version 2)
Quarter: 2014Q1

REPORT INFORMATION
  Report Type: Spontaneous
  Country: IT (occurrence: IT)
  Receive Date: 20130424
  Receipt Date: 20140116
  Transmission Date: 20141002
  Serious: Yes (Hospitalization)
  Sender: FDA-Public Use
  Company Number: IT-SANOFI-AVENTIS-2013SA039786

PATIENT
  Age: 53 Year
  Sex: Female

DRUGS (2)
  1. TAXOTERE [Suspect]
     Indication: BREAST CANCER
     Route: 041
     Dates: start: 20130415, end: 20130415
  2. PNEUMOCOCCAL VACCINE [Concomitant]
     Dates: start: 20130413

REACTIONS (3)
  - Loss of consciousness [Recovering/Resolving]
  - Cold sweat [Recovering/Resolving]
  - Hypotension [Recovering/Resolving]
